FAERS Safety Report 22001447 (Version 1)
Quarter: 2023Q1

REPORT INFORMATION
  Report Type: Report from Study
  Country: ES (occurrence: ES)
  Receive Date: 20230216
  Receipt Date: 20230216
  Transmission Date: 20230418
  Serious: Yes (Hospitalization, Other)
  Sender: FDA-Public Use
  Company Number: None

PATIENT
  Age: 3 Year
  Sex: Female
  Weight: 17.5 kg

DRUGS (18)
  1. METHOTREXATE [Suspect]
     Active Substance: METHOTREXATE
     Indication: Acute lymphocytic leukaemia
     Dosage: 10 MILLIGRAM, QW
     Route: 065
     Dates: start: 20170201, end: 20170409
  2. ONCASPAR [Suspect]
     Active Substance: PEGASPARGASE
     Indication: Acute lymphocytic leukaemia
     Dosage: 675 IU, Q4D,INJECTABLE AND PERFUSION SOLUTION.
     Route: 065
     Dates: start: 20170201, end: 20170314
  3. ONCASPAR [Suspect]
     Active Substance: PEGASPARGASE
     Dosage: 660 IU, QD, 1 VIAL OF 5ML
     Route: 065
     Dates: start: 20170722, end: 20170722
  4. METHYLPREDNISOLONE [Suspect]
     Active Substance: METHYLPREDNISOLONE
     Indication: Acute lymphocytic leukaemia
     Dosage: UNK
     Route: 065
     Dates: start: 20170627, end: 20170801
  5. DAUNORUBICIN HYDROCHLORIDE [Suspect]
     Active Substance: DAUNORUBICIN HYDROCHLORIDE
     Indication: Acute lymphocytic leukaemia
     Dosage: 19.8 MILLIGRAM, QW
     Route: 065
     Dates: start: 20170718, end: 20170725
  6. HYDROCORTISONE [Suspect]
     Active Substance: HYDROCORTISONE
     Indication: Acute lymphocytic leukaemia
     Dosage: 2 MILLIGRAM, QD
     Route: 065
     Dates: start: 20161221, end: 20170201
  7. HYDROCORTISONE [Suspect]
     Active Substance: HYDROCORTISONE
     Dosage: TREATMENT
     Route: 065
  8. VINCRISTINE SULFATE [Suspect]
     Active Substance: VINCRISTINE SULFATE
     Indication: Acute lymphocytic leukaemia
     Dosage: 1 MILLIGRAM
     Route: 065
     Dates: start: 20170718, end: 20170725
  9. MERCAPTOPURINE [Suspect]
     Active Substance: MERCAPTOPURINE
     Indication: Acute lymphocytic leukaemia
     Dosage: 16 MILLIGRAM, QD
     Route: 065
     Dates: start: 20170201, end: 20170409
  10. SULFAMETHOXAZOLE\TRIMETHOPRIM [Concomitant]
     Active Substance: SULFAMETHOXAZOLE\TRIMETHOPRIM
     Indication: Antibiotic prophylaxis
     Dosage: 4.5 MILLIGRAM, QD
     Route: 048
     Dates: start: 20160704, end: 20170409
  11. SULFAMETHOXAZOLE\TRIMETHOPRIM [Concomitant]
     Active Substance: SULFAMETHOXAZOLE\TRIMETHOPRIM
     Indication: Opportunistic infection prophylaxis
     Dosage: 8 MG/40 MG/ML,1 BOTTLE OF 100 ML
     Route: 048
  12. SULFAMETHOXAZOLE\TRIMETHOPRIM [Concomitant]
     Active Substance: SULFAMETHOXAZOLE\TRIMETHOPRIM
     Dosage: 5 MILLILITER, BID
     Route: 048
     Dates: start: 20170627
  13. AMPHOTERICIN B [Concomitant]
     Active Substance: AMPHOTERICIN B
     Indication: Opportunistic infection prophylaxis
     Dosage: 24 MILLIGRAM, QW
     Route: 065
     Dates: start: 20170627
  14. ACYCLOVIR [Concomitant]
     Active Substance: ACYCLOVIR
     Indication: Opportunistic infection prophylaxis
     Dosage: 2 MILLILITER, QD
     Route: 065
     Dates: start: 20160704, end: 20170409
  15. ACYCLOVIR [Concomitant]
     Active Substance: ACYCLOVIR
     Indication: Antiviral prophylaxis
     Dosage: 165 MILLIGRAM, QD
     Route: 065
     Dates: start: 20170627
  16. OMEPRAZOLE [Concomitant]
     Active Substance: OMEPRAZOLE
     Indication: Prophylaxis against gastrointestinal ulcer
     Dosage: 16 MILLIGRAM, QD
     Route: 065
     Dates: start: 20170627, end: 20170801
  17. FLUCONAZOLE [Concomitant]
     Active Substance: FLUCONAZOLE
     Indication: Opportunistic infection prophylaxis
     Dosage: 100 MILLIGRAM, QD
     Route: 065
     Dates: start: 20170627
  18. SULFAMETHOXAZOLE\TRIMETHOPRIM [Concomitant]
     Active Substance: SULFAMETHOXAZOLE\TRIMETHOPRIM
     Indication: Opportunistic infection prophylaxis
     Dosage: 5 MILLILITER
     Route: 065
     Dates: start: 20170627

REACTIONS (4)
  - Febrile neutropenia [Recovered/Resolved]
  - Shock [Recovered/Resolved]
  - Device related infection [Recovered/Resolved]
  - Neutropenia [Recovered/Resolved]

NARRATIVE: CASE EVENT DATE: 20170328
